FAERS Safety Report 24901103 (Version 1)
Quarter: 2025Q1

REPORT INFORMATION
  Report Type: Spontaneous
  Country: US (occurrence: None)
  Receive Date: 20250129
  Receipt Date: 20250129
  Transmission Date: 20250409
  Serious: No
  Sender: FDA-CTU
  Company Number: None

PATIENT
  Age: 51 Year
  Sex: Female
  Weight: 63 kg

DRUGS (7)
  1. GLATIRAMER ACETATE [Suspect]
     Active Substance: GLATIRAMER ACETATE
     Indication: Multiple sclerosis
     Route: 058
     Dates: start: 20240219, end: 20250114
  2. ARMODAFINIL [Concomitant]
     Active Substance: ARMODAFINIL
  3. GLATIRAMER ACETATE [Concomitant]
     Active Substance: GLATIRAMER ACETATE
  4. B12 [Concomitant]
  5. VITAMIN D3 [Concomitant]
     Active Substance: CHOLECALCIFEROL
  6. MAGNESIUM GLYCINATE [Concomitant]
     Active Substance: MAGNESIUM GLYCINATE
  7. BIOTIN [Concomitant]
     Active Substance: BIOTIN

REACTIONS (9)
  - Anxiety [None]
  - Dizziness [None]
  - Dyspnoea [None]
  - Erythema [None]
  - Throat tightness [None]
  - Feeling hot [None]
  - Tremor [None]
  - Feeling cold [None]
  - Vomiting [None]

NARRATIVE: CASE EVENT DATE: 20250113
